FAERS Safety Report 9258440 (Version 2)
Quarter: 2013Q2

REPORT INFORMATION
  Report Type: Spontaneous
  Country: US (occurrence: US)
  Receive Date: 20130426
  Receipt Date: 20130625
  Transmission Date: 20140414
  Serious: No
  Sender: FDA-Public Use
  Company Number: US-ROXANE LABORATORIES, INC.-2013-RO-00642RO

PATIENT
  Age: 68 Year
  Sex: Male

DRUGS (5)
  1. FLECAINIDE [Suspect]
     Indication: ATRIAL FIBRILLATION
     Dosage: 200 MG
     Route: 048
     Dates: start: 201207
  2. FLECAINIDE [Suspect]
     Dosage: 100 MG
     Route: 048
     Dates: start: 201210, end: 20130423
  3. TOPROL [Concomitant]
     Indication: HYPERTENSION
     Dosage: 25 MG
     Dates: start: 2003
  4. ZOLOFT [Concomitant]
  5. SIMVASTATIN [Concomitant]
     Indication: BLOOD CHOLESTEROL INCREASED
     Dosage: 40 MG
     Dates: start: 1999

REACTIONS (4)
  - Fatigue [Not Recovered/Not Resolved]
  - Tremor [Not Recovered/Not Resolved]
  - Dizziness [Unknown]
  - Balance disorder [Unknown]
